FAERS Safety Report 6497117-7 (Version None)
Quarter: 2009Q4

REPORT INFORMATION
  Report Type: 
  Country: None (occurrence: None)
  Receive Date: 20091215
  Receipt Date: 20090407
  Transmission Date: 20100525
  Serious: No
  Sender: FDA-Public Use
  Company Number: A0775052A

PATIENT
  Sex: Female

DRUGS (1)
  1. AVODART [Suspect]
     Indication: ACCIDENTAL EXPOSURE
     Route: 062

REACTIONS (2)
  - ACCIDENTAL EXPOSURE [None]
  - DRUG EXPOSURE DURING PREGNANCY [None]
